FAERS Safety Report 6155479-4 (Version None)
Quarter: 2009Q2

REPORT INFORMATION
  Report Type: 
  Country: None (occurrence: None)
  Receive Date: 20090415
  Receipt Date: 20090414
  Transmission Date: 20091009
  Serious: Yes (Death, Other)
  Sender: FDA-Public Use
  Company Number: PHEH2006US08858

PATIENT
  Sex: Male

DRUGS (13)
  1. ZOMETA [Suspect]
     Indication: PROSTATE CANCER METASTATIC
     Dosage: 4 MG, EVERY 4-6 WEEKS
     Dates: start: 20020101, end: 20050727
  2. ZOMETA [Suspect]
     Indication: BONE NEOPLASM MALIGNANT
  3. HORMONES AND RELATED AGENTS [Concomitant]
  4. ALBUTEROL SULFATE [Concomitant]
     Indication: ASTHMA
     Dosage: UNK
  5. DARVOCET-N 100 [Concomitant]
     Dosage: 100 MG Q6 HRS PRN
  6. ERYTHROMYCIN [Concomitant]
     Dosage: UNK
     Dates: start: 20050101, end: 20050101
  7. PREDNISONE [Concomitant]
     Indication: CHRONIC OBSTRUCTIVE PULMONARY DISEASE
  8. ATROVENT [Concomitant]
     Indication: ASTHMA
     Dosage: UNK
  9. HYDROCHLOROTHIAZIDE [Concomitant]
     Dosage: 25 MG, QD
  10. INFLUENZA VIRUS VACCINE [Concomitant]
     Dosage: UNK
     Dates: start: 20030101
  11. OXYGEN THERAPY [Concomitant]
     Dosage: 2 L, UNK
  12. TAXOTERE [Concomitant]
     Indication: PROSTATE CANCER METASTATIC
     Dosage: 75 MG/M2, Q 3 WEEKS
     Dates: start: 20040929, end: 20060701
  13. TAXOL + CARBOPLATIN [Concomitant]
     Indication: PROSTATE CANCER METASTATIC

REACTIONS (29)
  - ANXIETY [None]
  - ASTHENIA [None]
  - ATELECTASIS [None]
  - BONE DEBRIDEMENT [None]
  - BONE DISORDER [None]
  - BONE PAIN [None]
  - BREATH ODOUR [None]
  - CEREBROVASCULAR ACCIDENT [None]
  - CHEILITIS [None]
  - DIZZINESS [None]
  - DYSGEUSIA [None]
  - HAEMATURIA [None]
  - HEPATIC LESION [None]
  - IMPAIRED HEALING [None]
  - INJURY [None]
  - MALIGNANT NEOPLASM PROGRESSION [None]
  - MASTICATION DISORDER [None]
  - METASTASES TO BONE [None]
  - METASTASES TO LUNG [None]
  - ORAL CANDIDIASIS [None]
  - OSTEOMYELITIS [None]
  - OSTEONECROSIS [None]
  - PAIN [None]
  - PROSTATIC SPECIFIC ANTIGEN INCREASED [None]
  - STOMATITIS [None]
  - TOOTH DISORDER [None]
  - TOOTH EXTRACTION [None]
  - TOOTH LOSS [None]
  - WEIGHT DECREASED [None]
